FAERS Safety Report 4980431-1 (Version None)
Quarter: 2006Q2

REPORT INFORMATION
  Report Type: 
  Country: None (occurrence: None)
  Receive Date: 20060424
  Receipt Date: 20060412
  Transmission Date: 20061013
  Serious: Yes (Hospitalization)
  Sender: FDA-Public Use
  Company Number: AU-GLAXOSMITHKLINE-B0420216A

PATIENT
  Age: 83 Year
  Sex: Female

DRUGS (4)
  1. BECONASE [Suspect]
     Indication: SINUS DISORDER
     Dosage: 2PUFF TWICE PER DAY
     Route: 045
     Dates: start: 20060301
  2. SERETIDE [Concomitant]
  3. EZETROL [Concomitant]
  4. BLOOD PRESSURE MEDICATION [Concomitant]

REACTIONS (3)
  - DYSPNOEA [None]
  - MUSCULAR WEAKNESS [None]
  - VERTIGO [None]
